FAERS Safety Report 9890736 (Version 1)
Quarter: 2014Q1

REPORT INFORMATION
  Report Type: Spontaneous
  Country: US (occurrence: None)
  Receive Date: 20140210
  Receipt Date: 20140210
  Transmission Date: 20141002
  Serious: Yes (Hospitalization)
  Sender: FDA-Public Use
  Company Number: None

PATIENT
  Age: 78 Year
  Sex: Male
  Weight: 86.5 kg

DRUGS (1)
  1. RIVAROXABAN 20MG [Suspect]
     Dosage: 1 TAB  QD ORAL
     Route: 048

REACTIONS (1)
  - Capillary leak syndrome [None]
